FAERS Safety Report 8548467-1 (Version None)
Quarter: 2012Q3

REPORT INFORMATION
  Report Type: 
  Country: None (occurrence: None)
  Receive Date: 20120719
  Receipt Date: 20120719
  Transmission Date: 20120928
  Serious: No
  Sender: FDA-Public Use
  Company Number: None

PATIENT
  Sex: Male
  Weight: 89.3586 kg

DRUGS (4)
  1. TREANDA [Suspect]
     Dosage: 250 MG 1 DAY IV
     Dates: start: 20120703
  2. TREANDA [Suspect]
  3. TREANDA [Suspect]
     Indication: NON-HODGKIN'S LYMPHOMA
     Dosage: 250 MG 2 DAYS IV
     Route: 042
     Dates: start: 20120606, end: 20120607
  4. TREANDA [Suspect]

REACTIONS (1)
  - PEMPHIGOID [None]
